FAERS Safety Report 4936380-8 (Version None)
Quarter: 2006Q1

REPORT INFORMATION
  Report Type: 
  Country: None (occurrence: None)
  Receive Date: 20060302
  Receipt Date: 20060213
  Transmission Date: 20060701
  Serious: Yes (Hospitalization, Other)
  Sender: FDA-Public Use
  Company Number: US200602002919

PATIENT
  Age: 77 Year
  Sex: Male

DRUGS (4)
  1. HUMULIN 70/30 [Suspect]
     Indication: DIABETES MELLITUS
     Dosage: 50 U 2/D
  2. HUMALOG [Suspect]
     Indication: DIABETES MELLITUS
     Dosage: 6 U, AS NEEDED
     Dates: start: 20040801
  3. HUMULIN N [Suspect]
     Dates: start: 19980101, end: 20040101
  4. HUMULIN R [Suspect]
     Indication: DIABETES MELLITUS
     Dates: start: 19980101, end: 20040101

REACTIONS (5)
  - ARTHROPATHY [None]
  - BLOOD GLUCOSE FLUCTUATION [None]
  - CARDIAC DISORDER [None]
  - CORONARY ARTERIAL STENT INSERTION [None]
  - CORONARY ARTERY SURGERY [None]
